FAERS Safety Report 5581943-2 (Version None)
Quarter: 2008Q1

REPORT INFORMATION
  Report Type: 
  Country: None (occurrence: None)
  Receive Date: 20080104
  Receipt Date: 20071228
  Transmission Date: 20080703
  Serious: No
  Sender: FDA-Public Use
  Company Number: B0494703A

PATIENT
  Age: 67 Year
  Sex: Male
  Weight: 60 kg

DRUGS (7)
  1. VALTREX [Suspect]
     Indication: HERPES ZOSTER
     Dosage: 1000MG THREE TIMES PER DAY
     Route: 048
     Dates: start: 20071102, end: 20071106
  2. ALLELOCK [Concomitant]
     Indication: PRURITUS
     Dosage: 10MG PER DAY
     Route: 048
     Dates: start: 20071016
  3. CELESTAMINE TAB [Concomitant]
     Indication: PRURITUS
     Dosage: .5MG PER DAY
     Route: 048
     Dates: start: 20071016, end: 20071022
  4. FLUVOXAMINE MALEATE [Concomitant]
     Indication: CENTRAL PAIN SYNDROME
     Dosage: 75MG PER DAY
     Route: 048
  5. TEGRETOL [Concomitant]
     Indication: CENTRAL PAIN SYNDROME
     Dosage: 300MG PER DAY
     Route: 048
     Dates: start: 20071010
  6. SIMVASTATIN [Concomitant]
     Indication: LIPIDS ABNORMAL
     Dosage: 10MG PER DAY
     Route: 048
     Dates: start: 20071023
  7. ZOVIRAX [Concomitant]
     Indication: HERPES ZOSTER
     Dosage: 5G PER DAY
     Route: 061
     Dates: start: 20071102, end: 20071107

REACTIONS (5)
  - APHTHOUS STOMATITIS [None]
  - EATING DISORDER [None]
  - HAEMATURIA [None]
  - HYDRONEPHROSIS [None]
  - PYREXIA [None]
